FAERS Safety Report 8687789 (Version 2)
Quarter: 2013Q1

REPORT INFORMATION
  Report Type: Spontaneous
  Country: DE (occurrence: DE)
  Receive Date: 20120727
  Receipt Date: 20130226
  Transmission Date: 20140127
  Serious: Yes (Hospitalization)
  Sender: FDA-Public Use
  Company Number: DE-GENZYME-POMP-1002330

PATIENT
  Sex: Female
  Weight: 67 kg

DRUGS (3)
  1. MYOZYME [Suspect]
     Indication: GLYCOGEN STORAGE DISEASE TYPE II
     Dosage: 20.15 MG/KG, Q2W
     Route: 042
     Dates: start: 20110907, end: 20120613
  2. CETIRIZINE [Concomitant]
     Indication: MULTIPLE ALLERGIES
     Dosage: UNK
     Route: 048
  3. MARVELON [Concomitant]
     Indication: CONTRACEPTION
     Dosage: UNK
     Route: 048

REACTIONS (2)
  - Ovarian cancer [Not Recovered/Not Resolved]
  - Malignant peritoneal neoplasm [Not Recovered/Not Resolved]
